FAERS Safety Report 8873074 (Version 1)
Quarter: 2012Q4

REPORT INFORMATION
  Report Type: 
  Country: IT (occurrence: IT)
  Receive Date: 20121029
  Receipt Date: 20121029
  Transmission Date: 20130627
  Serious: Yes (Other)
  Sender: FDA-Public Use
  Company Number: IT-MYLANLABS-2012S1021658

PATIENT
  Age: 64 Year
  Sex: Male

DRUGS (1)
  1. TAMSULOSIN HYDROCHLORIDE [Suspect]
     Indication: PROSTATIC ADENOMA
     Dates: start: 20120520, end: 20120601

REACTIONS (2)
  - Breast pain [Recovering/Resolving]
  - Gynaecomastia [Recovering/Resolving]
